FAERS Safety Report 9664349 (Version 1)
Quarter: 2013Q4

REPORT INFORMATION
  Report Type: Spontaneous
  Country: FR (occurrence: FR)
  Receive Date: 20131101
  Receipt Date: 20131101
  Transmission Date: 20140711
  Serious: Yes (Hospitalization)
  Sender: FDA-Public Use
  Company Number: FR-B.I. PHARMACEUTICALS,INC./RIDGEFIELD-2013-FF-02621FF

PATIENT
  Age: 50 Year
  Sex: Male

DRUGS (3)
  1. TWYNSTA [Suspect]
     Route: 048
     Dates: start: 201210
  2. LAMICTAL [Suspect]
     Dates: start: 201307, end: 201307
  3. URBANYL [Suspect]
     Dates: start: 201307

REACTIONS (1)
  - Lupus-like syndrome [Unknown]
